FAERS Safety Report 7607458-5 (Version None)
Quarter: 2011Q3

REPORT INFORMATION
  Report Type: 
  Country: None (occurrence: None)
  Receive Date: 20110713
  Receipt Date: 20110628
  Transmission Date: 20111222
  Serious: Yes (Death)
  Sender: FDA-Public Use
  Company Number: US-WATSON-2011-09656

PATIENT
  Sex: Male

DRUGS (1)
  1. FENTANYL CITRATE [Suspect]
     Indication: PAIN
     Dosage: UNK
     Route: 062
     Dates: start: 20090801, end: 20090831

REACTIONS (2)
  - ANALGESIC DRUG LEVEL INCREASED [None]
  - OVERDOSE [None]
